FAERS Safety Report 19898767 (Version 1)
Quarter: 2021Q3

REPORT INFORMATION
  Report Type: Spontaneous
  Country: US (occurrence: US)
  Receive Date: 20210929
  Receipt Date: 20210929
  Transmission Date: 20211014
  Serious: No
  Sender: FDA-Public Use
  Company Number: US-BAUSCH-BL-2021-032806

PATIENT
  Age: 78 Year
  Sex: Female

DRUGS (4)
  1. LUMIFY [Suspect]
     Active Substance: BRIMONIDINE TARTRATE
     Dosage: STARTED: PAST YEAR
     Route: 047
     Dates: end: 20210918
  2. LUMIFY [Suspect]
     Active Substance: BRIMONIDINE TARTRATE
     Route: 047
     Dates: start: 202109
  3. LUMIFY [Suspect]
     Active Substance: BRIMONIDINE TARTRATE
     Route: 047
  4. LUMIFY [Suspect]
     Active Substance: BRIMONIDINE TARTRATE
     Indication: OCULAR HYPERAEMIA
     Route: 047

REACTIONS (4)
  - Therapeutic product effect decreased [Unknown]
  - Instillation site irritation [Unknown]
  - Instillation site dryness [Recovering/Resolving]
  - Inappropriate schedule of product administration [Unknown]

NARRATIVE: CASE EVENT DATE: 2021
